FAERS Safety Report 9524319 (Version 1)
Quarter: 2013Q1

REPORT INFORMATION
  Report Type: Spontaneous
  Country: US (occurrence: None)
  Receive Date: 20130313
  Receipt Date: 20130313
  Transmission Date: 20140127
  Serious: No
  Sender: FDA-Public Use
  Company Number: 1000038079

PATIENT
  Age: 60 Year
  Sex: Female

DRUGS (4)
  1. SAVELLA [Suspect]
     Indication: FIBROMYALGIA
     Dosage: 12.5 MG (12.5 MG, 1 IN 1 D), ORAL
     Route: 048
     Dates: start: 20120724, end: 20120724
  2. LISINOPRIL [Concomitant]
  3. BABY ASPIRIN (ACETLSALICYLIC ACID) [Concomitant]
  4. CLONAZEPAM [Concomitant]

REACTIONS (4)
  - Crying [None]
  - Irritability [None]
  - Feeling abnormal [None]
  - Headache [None]
